FAERS Safety Report 6693931-3 (Version None)
Quarter: 2010Q2

REPORT INFORMATION
  Report Type: 
  Country: None (occurrence: None)
  Receive Date: 20100423
  Receipt Date: 20100413
  Transmission Date: 20101027
  Serious: Yes (Hospitalization)
  Sender: FDA-Public Use
  Company Number: US-PFIZER INC-2010047182

PATIENT

DRUGS (1)
  1. LIPITOR [Suspect]

REACTIONS (1)
  - GASTRIC BYPASS [None]
